FAERS Safety Report 10713263 (Version 1)
Quarter: 2015Q1

REPORT INFORMATION
  Report Type: Spontaneous
  Country: FR (occurrence: FR)
  Receive Date: 20150115
  Receipt Date: 20150115
  Transmission Date: 20150721
  Serious: Yes (Hospitalization)
  Sender: FDA-Public Use
  Company Number: FR-PFIZER INC-2015009215

PATIENT
  Age: 66 Year
  Sex: Male
  Weight: 64 kg

DRUGS (5)
  1. EVEROLIMUS [Interacting]
     Active Substance: EVEROLIMUS
     Indication: IMMUNOSUPPRESSION
     Dosage: 1.5 MG, 2X/DAY
  2. EVEROLIMUS [Interacting]
     Active Substance: EVEROLIMUS
     Dosage: 2.5 MG, DAILY (1.5 MG MORNING AND 1 MG EVENING)
  3. EVEROLIMUS [Interacting]
     Active Substance: EVEROLIMUS
     Dosage: 1 MG, 2X/DAY
  4. VORICONAZOLE. [Suspect]
     Active Substance: VORICONAZOLE
     Indication: PULMONARY MYCOSIS
     Dosage: 400 MG, 2X/DAY THE FIRST DAY
     Route: 048
  5. VORICONAZOLE. [Interacting]
     Active Substance: VORICONAZOLE
     Indication: ASPERGILLUS INFECTION
     Dosage: 200 MG, 2X/DAY
     Route: 048

REACTIONS (2)
  - Drug interaction [Not Recovered/Not Resolved]
  - Pneumonitis [Not Recovered/Not Resolved]
